FAERS Safety Report 15493373 (Version 1)
Quarter: 2018Q4

REPORT INFORMATION
  Report Type: Spontaneous
  Country: US (occurrence: US)
  Receive Date: 20181012
  Receipt Date: 20181012
  Transmission Date: 20190205
  Serious: Yes (Life-Threatening)
  Sender: FDA-Public Use
  Company Number: None

PATIENT
  Age: 61 Year
  Sex: Female
  Weight: 92.5 kg

DRUGS (2)
  1. PACLITAXEL. [Suspect]
     Active Substance: PACLITAXEL
     Indication: OVARIAN CANCER
     Dosage: ?          OTHER FREQUENCY:EVERY 21 DAYS;?
     Route: 041
     Dates: start: 20181005, end: 20181005
  2. PACLITAXEL. [Suspect]
     Active Substance: PACLITAXEL
     Indication: OVARIAN CANCER
     Dosage: ?          OTHER FREQUENCY:EVERY 21 DAYS;?
     Route: 041
     Dates: start: 20181005, end: 20181005

REACTIONS (4)
  - Blood pressure systolic decreased [None]
  - Flushing [None]
  - Chest pain [None]
  - Chest discomfort [None]

NARRATIVE: CASE EVENT DATE: 20181005
